FAERS Safety Report 15608944 (Version 3)
Quarter: 2019Q1

REPORT INFORMATION
  Report Type: Spontaneous
  Country: US (occurrence: US)
  Receive Date: 20181112
  Receipt Date: 20190321
  Transmission Date: 20190417
  Serious: Yes (Other)
  Sender: FDA-Public Use
  Company Number: US-SA-2018SA309094

PATIENT
  Age: 62 Year
  Sex: Female
  Weight: 63.5 kg

DRUGS (7)
  1. ADRIAMYCIN [Concomitant]
     Active Substance: DOXORUBICIN HYDROCHLORIDE
     Dosage: UNK UNK, UNK
     Route: 065
     Dates: start: 20100416, end: 20100416
  2. TAXOTERE [Suspect]
     Active Substance: DOCETAXEL
     Indication: BREAST CANCER FEMALE
     Dosage: 127 MG, QOW
     Route: 042
     Dates: start: 20100416, end: 20100416
  3. NEOSAR [Concomitant]
     Active Substance: CYCLOPHOSPHAMIDE
     Dosage: UNK UNK, UNK
     Route: 065
     Dates: start: 20100416, end: 20100416
  4. ADRIAMYCIN [Concomitant]
     Active Substance: DOXORUBICIN HYDROCHLORIDE
     Dosage: UNK UNK, UNK
     Route: 065
     Dates: start: 20100528, end: 20100528
  5. LOVASTATIN. [Concomitant]
     Active Substance: LOVASTATIN
     Dosage: UNK UNK, UNK
     Route: 065
     Dates: start: 2008, end: 2010
  6. TAXOTERE [Suspect]
     Active Substance: DOCETAXEL
     Dosage: 127 MG, QOW
     Route: 042
     Dates: start: 20100528, end: 20100528
  7. NEOSAR [Concomitant]
     Active Substance: CYCLOPHOSPHAMIDE
     Dosage: UNK UNK, UNK
     Route: 065
     Dates: start: 20100528, end: 20100528

REACTIONS (1)
  - Alopecia [Recovering/Resolving]

NARRATIVE: CASE EVENT DATE: 20100312
